FAERS Safety Report 4579876-3 (Version None)
Quarter: 2005Q1

REPORT INFORMATION
  Report Type: 
  Country: None (occurrence: None)
  Receive Date: 20050203
  Receipt Date: 20040202
  Transmission Date: 20050727
  Serious: No
  Sender: FDA-Public Use
  Company Number: WAES 0402USA00195

PATIENT
  Age: 38 Year
  Sex: Female

DRUGS (1)
  1. ELSPAR [Suspect]
     Indication: LEUKAEMIA
     Dosage: 2 IU/1X/INJ
     Dates: start: 20040202, end: 20040202

REACTIONS (2)
  - PRURITUS [None]
  - URTICARIA PAPULAR [None]
